FAERS Safety Report 11750310 (Version 1)
Quarter: 2015Q4

REPORT INFORMATION
  Report Type: Spontaneous
  Country: US (occurrence: None)
  Receive Date: 20151117
  Receipt Date: 20151117
  Transmission Date: 20160304
  Serious: No
  Sender: FDA-Public Use
  Company Number: None

PATIENT
  Age: 59 Year
  Sex: Female
  Weight: 53.07 kg

DRUGS (1)
  1. CITALOPRAM 40 MG DR. REDDY^S LAB [Suspect]
     Active Substance: CITALOPRAM HYDROBROMIDE
     Indication: DEPRESSION
     Dosage: 1 PILL
     Route: 048
     Dates: start: 20140401, end: 20140414

REACTIONS (2)
  - Vertigo [None]
  - Product quality issue [None]

NARRATIVE: CASE EVENT DATE: 20140401
